FAERS Safety Report 13612379 (Version 2)
Quarter: 2017Q3

REPORT INFORMATION
  Report Type: Spontaneous
  Country: US (occurrence: US)
  Receive Date: 20170605
  Receipt Date: 20170907
  Transmission Date: 20171127
  Serious: Yes (Death, Other)
  Sender: FDA-Public Use
  Company Number: US-NOVOPROD-547807

PATIENT
  Age: 53 Year
  Sex: Male

DRUGS (1)
  1. NOVOLOG [Suspect]
     Active Substance: INSULIN ASPART
     Indication: DIABETES MELLITUS
     Dosage: VIA PUMP SETTINGS
     Route: 058
     Dates: start: 2002

REACTIONS (2)
  - Death [Fatal]
  - End stage renal disease [Recovered/Resolved]

NARRATIVE: CASE EVENT DATE: 2004
